FAERS Safety Report 14079991 (Version 1)
Quarter: 2017Q4

REPORT INFORMATION
  Report Type: Spontaneous
  Country: US (occurrence: US)
  Receive Date: 20171012
  Receipt Date: 20171012
  Transmission Date: 20180321
  Serious: No
  Sender: FDA-Public Use
  Company Number: US-ASTRAZENECA-2016SF07428

PATIENT
  Sex: Female

DRUGS (2)
  1. ZOMIG [Suspect]
     Active Substance: ZOLMITRIPTAN
     Indication: MIGRAINE
     Dosage: USE 1 SPRAY IN ONE NOSTRIL AT BEGINNING OF MIGRAINE AS DIRECTED
     Route: 045
     Dates: start: 200911
  2. ZOMIG [Suspect]
     Active Substance: ZOLMITRIPTAN
     Indication: MIGRAINE WITHOUT AURA
     Dosage: USE 1 SPRAY IN ONE NOSTRIL AT BEGINNING OF MIGRAINE AS DIRECTED
     Route: 045
     Dates: start: 200911

REACTIONS (4)
  - Migraine [Not Recovered/Not Resolved]
  - Malaise [Unknown]
  - Drug dose omission [Not Recovered/Not Resolved]
  - Decreased activity [Not Recovered/Not Resolved]
